FAERS Safety Report 9889748 (Version 2)
Quarter: 2014Q1

REPORT INFORMATION
  Report Type: Spontaneous
  Country: US (occurrence: US)
  Receive Date: 20140211
  Receipt Date: 20140226
  Transmission Date: 20141002
  Serious: Yes (Other)
  Sender: FDA-Public Use
  Company Number: US-009507513-1402USA002920

PATIENT
  Age: 72 Year
  Sex: Male

DRUGS (4)
  1. INTRONA [Suspect]
     Indication: MYCOSIS FUNGOIDES
     Dosage: 1.0 (MEASUREMENT NOT CONFIRMED) INJECTION TAKEN 3 TIMES PER WEEK AT 9:30PM
     Route: 030
  2. INTRONA [Suspect]
     Dosage: UNK
     Route: 030
     Dates: start: 200702, end: 2009
  3. TAZORAC [Concomitant]
  4. TARGRETIN [Concomitant]

REACTIONS (3)
  - Coronary artery bypass [Unknown]
  - Weight increased [Not Recovered/Not Resolved]
  - Fatigue [Not Recovered/Not Resolved]
